FAERS Safety Report 10015809 (Version 2)
Quarter: 2014Q2

REPORT INFORMATION
  Report Type: Spontaneous
  Country: US (occurrence: US)
  Receive Date: 20140317
  Receipt Date: 20140416
  Transmission Date: 20141212
  Serious: Yes (Other)
  Sender: FDA-Public Use
  Company Number: US-GLAXOSMITHKLINE-A1064353A

PATIENT
  Age: 69 Year
  Sex: Female

DRUGS (2)
  1. ADVAIR [Suspect]
     Indication: CHRONIC OBSTRUCTIVE PULMONARY DISEASE
     Dosage: 1PUFF TWICE PER DAY
     Route: 055
  2. LEVAQUIN [Concomitant]

REACTIONS (3)
  - Pneumonia [Recovered/Resolved]
  - Respiratory tract congestion [Recovered/Resolved]
  - Cough [Recovered/Resolved]
